FAERS Safety Report 9311584 (Version 1)
Quarter: 2013Q2

REPORT INFORMATION
  Report Type: Spontaneous
  Country: DK (occurrence: DK)
  Receive Date: 20130528
  Receipt Date: 20130528
  Transmission Date: 20140414
  Serious: Yes (Hospitalization)
  Sender: FDA-Public Use
  Company Number: DK-SANOFI-AVENTIS-2013SA050627

PATIENT
  Age: 67 Year
  Sex: Male

DRUGS (1)
  1. PLAQUENIL [Suspect]
     Indication: SYSTEMIC LUPUS ERYTHEMATOSUS
     Dosage: PILL
     Route: 065
     Dates: start: 20130205

REACTIONS (4)
  - Depression [Not Recovered/Not Resolved]
  - Psychomotor hyperactivity [Recovered/Resolved]
  - Compulsive shopping [Recovered/Resolved]
  - Mania [Recovered/Resolved]
